FAERS Safety Report 5311960-9 (Version None)
Quarter: 2007Q2

REPORT INFORMATION
  Report Type: 
  Country: None (occurrence: None)
  Receive Date: 20070430
  Receipt Date: 20060508
  Transmission Date: 20071010
  Serious: No
  Sender: FDA-Public Use
  Company Number: 2006UW06387

PATIENT
  Age: 74 Year
  Sex: Male
  Weight: 122.3 kg

DRUGS (4)
  1. NEXIUM [Suspect]
     Indication: DYSPEPSIA
     Route: 048
     Dates: start: 20060408
  2. PEPCID [Concomitant]
  3. MORPHINE [Concomitant]
  4. CODEINE SUL TAB [Concomitant]

REACTIONS (6)
  - PRURITUS [None]
  - RASH [None]
  - RETCHING [None]
  - SWELLING FACE [None]
  - SWOLLEN TONGUE [None]
  - URTICARIA [None]
